FAERS Safety Report 7686999-9 (Version None)
Quarter: 2011Q3

REPORT INFORMATION
  Report Type: 
  Country: None (occurrence: None)
  Receive Date: 20110816
  Receipt Date: 20110805
  Transmission Date: 20111222
  Serious: Yes (Hospitalization)
  Sender: FDA-Public Use
  Company Number: GB-BAXTER-2011BH025852

PATIENT
  Age: 57 Year
  Sex: Female

DRUGS (4)
  1. DIANEAL [Suspect]
     Indication: PERITONEAL DIALYSIS
     Route: 033
  2. DIANEAL [Suspect]
     Route: 033
  3. EXTRANEAL [Suspect]
     Indication: PERITONEAL DIALYSIS
     Route: 033
  4. EXTRANEAL [Suspect]
     Route: 033

REACTIONS (5)
  - PERITONITIS BACTERIAL [None]
  - DIARRHOEA [None]
  - VOMITING [None]
  - PERITONEAL DIALYSIS COMPLICATION [None]
  - CATHETER SITE INFECTION [None]
